FAERS Safety Report 4416138-9 (Version None)
Quarter: 2004Q3

REPORT INFORMATION
  Report Type: 
  Country: None (occurrence: None)
  Receive Date: 20040804
  Receipt Date: 20040804
  Transmission Date: 20050211
  Serious: No
  Sender: FDA-Public Use
  Company Number: None

PATIENT
  Age: 83 Year
  Sex: Female

DRUGS (2)
  1. VERSED [Suspect]
     Indication: SEDATION
     Dosage: 1 MG IV
     Route: 042
     Dates: start: 20040514
  2. DILAUDID [Suspect]
     Dosage: 1 MG IV
     Route: 042

REACTIONS (7)
  - ACUTE RESPIRATORY FAILURE [None]
  - BRUXISM [None]
  - CONDITION AGGRAVATED [None]
  - CONVULSION [None]
  - HYPERTENSION [None]
  - HYPOTENSION [None]
  - TONGUE BITING [None]
